FAERS Safety Report 6717282-3 (Version None)
Quarter: 2010Q2

REPORT INFORMATION
  Report Type: 
  Country: None (occurrence: None)
  Receive Date: 20100510
  Receipt Date: 20100502
  Transmission Date: 20101027
  Serious: Yes (Life-Threatening)
  Sender: FDA-Public Use
  Company Number: IL-SANOFI-AVENTIS-2010SA024003

PATIENT
  Age: 72 Year
  Sex: Female

DRUGS (4)
  1. TELFAST [Suspect]
     Route: 048
  2. AMLODIPINE [Concomitant]
  3. TRITACE [Concomitant]
  4. NORMITEN [Concomitant]

REACTIONS (5)
  - ANAPHYLACTIC SHOCK [None]
  - HYPOTENSION [None]
  - RASH [None]
  - SYNCOPE [None]
  - URTICARIA [None]
